FAERS Safety Report 5147310-0 (Version None)
Quarter: 2006Q4

REPORT INFORMATION
  Report Type: 
  Country: None (occurrence: None)
  Receive Date: 20061103
  Receipt Date: 20061019
  Transmission Date: 20070319
  Serious: Yes (Other)
  Sender: FDA-Public Use
  Company Number: 2006US002338

PATIENT
  Age: 66 Year
  Sex: Male

DRUGS (1)
  1. PROTOPIC [Suspect]
     Indication: BLEPHARITIS
     Dosage: TOPICAL
     Route: 061
     Dates: start: 20060101

REACTIONS (1)
  - OPTIC NERVE INJURY [None]
